FAERS Safety Report 8976407 (Version 1)
Quarter: 2012Q4

REPORT INFORMATION
  Report Type: Report from Study
  Country: CA (occurrence: CA)
  Receive Date: 20121220
  Receipt Date: 20121220
  Transmission Date: 20130627
  Serious: Yes (Other)
  Sender: FDA-Public Use
  Company Number: CA-ROCHE-1166748

PATIENT
  Sex: Female

DRUGS (1)
  1. OMALIZUMAB [Suspect]
     Indication: PRODUCT USED FOR UNKNOWN INDICATION
     Route: 065
     Dates: start: 20071017

REACTIONS (12)
  - Asthma [Unknown]
  - Breath sounds abnormal [Unknown]
  - Wheezing [Unknown]
  - Dyspnoea [Unknown]
  - Urinary tract infection [Unknown]
  - Blood immunoglobulin E increased [Unknown]
  - Malaise [Unknown]
  - Productive cough [Unknown]
  - Increased upper airway secretion [Unknown]
  - Nasopharyngitis [Unknown]
  - Fatigue [Unknown]
  - Cough [Unknown]
